FAERS Safety Report 5536471-7 (Version None)
Quarter: 2007Q4

REPORT INFORMATION
  Report Type: 
  Country: None (occurrence: None)
  Receive Date: 20071206
  Receipt Date: 20071203
  Transmission Date: 20080405
  Serious: Yes (Life-Threatening, Other)
  Sender: FDA-Public Use
  Company Number: US-MERCK-0711USA04163

PATIENT
  Age: 58 Year
  Sex: Female

DRUGS (3)
  1. COZAAR [Suspect]
     Indication: HYPERTENSION
     Route: 048
  2. WELLBUTRIN [Concomitant]
     Indication: DEPRESSION
     Route: 065
  3. LEXAPRO [Concomitant]
     Indication: DEPRESSION
     Route: 065

REACTIONS (2)
  - BLOOD PRESSURE INCREASED [None]
  - DEPRESSION [None]
